FAERS Safety Report 5618631-X (Version None)
Quarter: 2008Q1

REPORT INFORMATION
  Report Type: 
  Country: None (occurrence: None)
  Receive Date: 20080205
  Receipt Date: 20080205
  Transmission Date: 20080703
  Serious: Yes (Disabling)
  Sender: FDA-Public Use
  Company Number: None

PATIENT
  Age: 26 Year
  Sex: Male
  Weight: 112 kg

DRUGS (3)
  1. DIPHENHYDRAMINE HCL [Suspect]
     Dosage: 25MG  X2 DOSES  INTRAVESICA
     Route: 043
  2. DIPHENHYDRAMINE HCL [Suspect]
  3. DIPHENHYDRAMINE HCL [Suspect]

REACTIONS (1)
  - NO THERAPEUTIC RESPONSE [None]
